FAERS Safety Report 10149278 (Version 1)
Quarter: 2014Q2

REPORT INFORMATION
  Report Type: Spontaneous
  Country: ES (occurrence: ES)
  Receive Date: 20140502
  Receipt Date: 20140502
  Transmission Date: 20141212
  Serious: Yes (Other)
  Sender: FDA-Public Use
  Company Number: ES-AMGEN-ESPSP2014029921

PATIENT
  Age: 66 Year
  Sex: Female
  Weight: 53 kg

DRUGS (3)
  1. PROLIA [Suspect]
     Indication: OSTEOPOROSIS POSTMENOPAUSAL
     Dosage: 60 MG, UNK
     Route: 065
     Dates: start: 20140331
  2. IBERCAL D [Concomitant]
     Dosage: 1 DF, UNK
  3. HYGROTON [Concomitant]
     Indication: HYPERCALCIURIA
     Dosage: 1/2 TAB EVERY 48 HOUR

REACTIONS (1)
  - Generalised tonic-clonic seizure [Unknown]
